FAERS Safety Report 7291966-3 (Version None)
Quarter: 2011Q1

REPORT INFORMATION
  Report Type: 
  Country: None (occurrence: None)
  Receive Date: 20110214
  Receipt Date: 20110205
  Transmission Date: 20110831
  Serious: Yes (Other)
  Sender: FDA-Public Use
  Company Number: KR-BAXTER-2011BH003072

PATIENT
  Age: 37 Year
  Sex: Female
  Weight: 52 kg

DRUGS (6)
  1. SEVOFLURANE [Suspect]
     Indication: ANAESTHESIA
     Route: 065
  2. OXYGEN [Suspect]
     Indication: ANAESTHESIA
  3. LABETALOL [Suspect]
     Indication: PROCEDURAL HYPERTENSION
     Route: 042
  4. THIOPENTAL SODIUM [Suspect]
     Indication: ANAESTHESIA
     Route: 042
  5. ROCURONIUM BROMIDE [Suspect]
     Indication: ANAESTHESIA
     Route: 042
  6. NITROUS OXIDE [Suspect]
     Indication: ANAESTHESIA

REACTIONS (1)
  - DRUG EXPOSURE DURING PREGNANCY [None]
